FAERS Safety Report 4835390-9 (Version None)
Quarter: 2005Q4

REPORT INFORMATION
  Report Type: 
  Country: None (occurrence: None)
  Receive Date: 20051118
  Receipt Date: 20051107
  Transmission Date: 20060501
  Serious: Yes (Hospitalization)
  Sender: FDA-Public Use
  Company Number: 2005BI017376

PATIENT
  Age: 50 Year
  Sex: Female

DRUGS (5)
  1. AVONEX [Suspect]
     Indication: MULTIPLE SCLEROSIS
     Dosage: 30 UG, QW; IM
     Route: 030
     Dates: start: 20020101, end: 20050401
  2. OXYCONTIN [Concomitant]
  3. INDERAL [Concomitant]
  4. PROZAC [Concomitant]
  5. AMBIEN [Concomitant]

REACTIONS (3)
  - DERMOID CYST [None]
  - TREATMENT NONCOMPLIANCE [None]
  - UTERINE NEOPLASM [None]
